FAERS Safety Report 5115957-3 (Version None)
Quarter: 2006Q3

REPORT INFORMATION
  Report Type: 
  Country: None (occurrence: None)
  Receive Date: 20060927
  Receipt Date: 20051206
  Transmission Date: 20061208
  Serious: No
  Sender: FDA-Public Use
  Company Number: US-BRISTOL-MYERS SQUIBB COMPANY-13205745

PATIENT
  Age: 59 Year
  Sex: Female
  Weight: 204 kg

DRUGS (8)
  1. DEFINITY [Suspect]
     Indication: ECHOCARDIOGRAM
     Dosage: .3-.5CC BOLUS
     Route: 040
     Dates: start: 20051205, end: 20051205
  2. ASPIRIN [Concomitant]
  3. BENAZEPRIL HYDROCHLORIDE [Concomitant]
  4. BETACAROTENE [Concomitant]
  5. FUROSEMIDE [Concomitant]
  6. METOPROLOL [Concomitant]
  7. PIOGLITAZONE HCL [Concomitant]
  8. VITAMIN B COMPLEX CAP [Concomitant]

REACTIONS (3)
  - BACK PAIN [None]
  - MALAISE [None]
  - VOMITING [None]
